FAERS Safety Report 6314748-5 (Version None)
Quarter: 2009Q3

REPORT INFORMATION
  Report Type: 
  Country: None (occurrence: None)
  Receive Date: 20090819
  Receipt Date: 20090810
  Transmission Date: 20100115
  Serious: Yes (Other)
  Sender: FDA-Public Use
  Company Number: BR-ABBOTT-09P-020-0590580-00

PATIENT
  Sex: Female
  Weight: 64 kg

DRUGS (1)
  1. DEPAKOTE [Suspect]
     Indication: CONVULSION
     Route: 048

REACTIONS (5)
  - COAGULOPATHY [None]
  - DIZZINESS [None]
  - HEADACHE [None]
  - SKIN DISCOLOURATION [None]
  - SYNCOPE [None]
